FAERS Safety Report 5710652-1 (Version None)
Quarter: 2008Q2

REPORT INFORMATION
  Report Type: 
  Country: None (occurrence: None)
  Receive Date: 20080415
  Receipt Date: 20080401
  Transmission Date: 20081010
  Serious: Yes (Death, Life-Threatening)
  Sender: FDA-Public Use
  Company Number: 2008015137

PATIENT
  Sex: Male

DRUGS (1)
  1. FRAGMIN [Suspect]
     Indication: THROMBOSIS PROPHYLAXIS
     Dosage: 5000 I.U. (5000 I.U., QD), SUBCUTANEOUS
     Route: 058
     Dates: start: 20080203, end: 20080205

REACTIONS (3)
  - PLEURAL HAEMORRHAGE [None]
  - SEPSIS [None]
  - SURGICAL PROCEDURE REPEATED [None]
